FAERS Safety Report 8320661-4 (Version None)
Quarter: 2012Q2

REPORT INFORMATION
  Report Type: 
  Country: None (occurrence: None)
  Receive Date: 20120430
  Receipt Date: 20120416
  Transmission Date: 20120825
  Serious: Yes (Other)
  Sender: FDA-Public Use
  Company Number: CA-JNJFOC-20120406739

PATIENT
  Sex: Female
  Weight: 69 kg

DRUGS (5)
  1. CELEBREX [Concomitant]
     Route: 065
  2. LOVAZA [Concomitant]
     Route: 065
  3. ADALAT [Concomitant]
     Route: 065
  4. VITAMIN E [Concomitant]
     Route: 065
  5. REMICADE [Suspect]
     Indication: PSORIATIC ARTHROPATHY
     Route: 042
     Dates: start: 20111117

REACTIONS (4)
  - OCULAR HYPERAEMIA [None]
  - EYE SWELLING [None]
  - EYE IRRITATION [None]
  - EYE PAIN [None]
